FAERS Safety Report 6673585-2 (Version None)
Quarter: 2010Q2

REPORT INFORMATION
  Report Type: 
  Country: None (occurrence: None)
  Receive Date: 20100408
  Receipt Date: 20100326
  Transmission Date: 20101027
  Serious: Yes (Other)
  Sender: FDA-Public Use
  Company Number: US-PFIZER INC-2010015743

PATIENT
  Sex: Male
  Weight: 89.342 kg

DRUGS (3)
  1. GEODON [Suspect]
     Indication: BIPOLAR I DISORDER
     Dosage: 60 MG, 2X/DAY
     Route: 048
     Dates: start: 20091115, end: 20091202
  2. OMEGA-3 MARINE TRIGLYCERIDES [Concomitant]
     Dosage: 2 MG, 2X/DAY
  3. CRESTOR [Concomitant]
     Dosage: 5 MG, 1X/DAY

REACTIONS (4)
  - DIZZINESS [None]
  - ELECTROCARDIOGRAM QT PROLONGED [None]
  - HEART RATE DECREASED [None]
  - HEART RATE IRREGULAR [None]
